FAERS Safety Report 12919864 (Version 2)
Quarter: 2016Q4

REPORT INFORMATION
  Report Type: Report from Study
  Country: US (occurrence: US)
  Receive Date: 20161107
  Receipt Date: 20161116
  Transmission Date: 20170207
  Serious: Yes (Other)
  Sender: FDA-Public Use
  Company Number: US-AMGEN-USASL2016152682

PATIENT
  Age: 75 Year
  Sex: Female

DRUGS (2)
  1. METHOTREXATE. [Concomitant]
     Active Substance: METHOTREXATE
     Dosage: UNK
  2. ENBREL [Suspect]
     Active Substance: ETANERCEPT
     Indication: RHEUMATOID ARTHRITIS
     Dosage: UNK UNK, QWK
     Route: 065
     Dates: start: 20161006

REACTIONS (12)
  - Impaired quality of life [Unknown]
  - Pain in extremity [Unknown]
  - Musculoskeletal chest pain [Unknown]
  - Thyroid disorder [Unknown]
  - Back pain [Unknown]
  - Neuralgia [Unknown]
  - Cardiac disorder [Unknown]
  - Palpitations [Unknown]
  - Mobility decreased [Unknown]
  - Blood glucose increased [Unknown]
  - Abasia [Unknown]
  - Depression [Unknown]

NARRATIVE: CASE EVENT DATE: 201610
